FAERS Safety Report 6107082-X (Version None)
Quarter: 2009Q1

REPORT INFORMATION
  Report Type: 
  Country: None (occurrence: None)
  Receive Date: 20090309
  Receipt Date: 20090205
  Transmission Date: 20090719
  Serious: No
  Sender: FDA-Public Use
  Company Number: US-BAYER-200832776NA

PATIENT
  Sex: Female

DRUGS (1)
  1. YAZ [Suspect]
     Indication: DRUG USE FOR UNKNOWN INDICATION
     Route: 048
     Dates: start: 20080601

REACTIONS (4)
  - DIARRHOEA [None]
  - METRORRHAGIA [None]
  - NASOPHARYNGITIS [None]
  - UPPER RESPIRATORY TRACT CONGESTION [None]
